FAERS Safety Report 5141275-3 (Version None)
Quarter: 2006Q4

REPORT INFORMATION
  Report Type: 
  Country: None (occurrence: None)
  Receive Date: 20061101
  Receipt Date: 20061020
  Transmission Date: 20070319
  Serious: Yes (Other)
  Sender: FDA-Public Use
  Company Number: GR-JNJFOC-20061005000

PATIENT
  Age: 40 Year
  Sex: Male

DRUGS (8)
  1. INFLIXIMAB [Suspect]
     Indication: CROHN'S DISEASE
     Route: 042
  2. AZATHIOPRINE [Concomitant]
     Route: 048
  3. MESALAMINE [Concomitant]
     Indication: CROHN'S DISEASE
     Route: 048
  4. METRONIDAZOLE [Concomitant]
     Indication: CROHN'S DISEASE
     Route: 042
  5. PREDNISOLONE [Concomitant]
     Route: 042
  6. PREDNISOLONE [Concomitant]
     Indication: CROHN'S DISEASE
     Route: 042
  7. PREDNISOLONE [Concomitant]
  8. BUDESONIDE [Concomitant]
     Indication: CROHN'S DISEASE
     Route: 054

REACTIONS (2)
  - ACUTE CORONARY SYNDROME [None]
  - ATRIAL FIBRILLATION [None]
